FAERS Safety Report 15845238 (Version 4)
Quarter: 2019Q1

REPORT INFORMATION
  Report Type: Report from Study
  Country: None (occurrence: CO)
  Receive Date: 20190119
  Receipt Date: 20190315
  Transmission Date: 20190417
  Serious: Yes (Other)
  Sender: FDA-Public Use
  Company Number: CO-ABBVIE-18K-036-2591385-00

PATIENT
  Age: 55 Year
  Sex: Male
  Weight: 64 kg

DRUGS (2)
  1. HUMIRA [Suspect]
     Active Substance: ADALIMUMAB
     Indication: PSORIATIC ARTHROPATHY
     Route: 058
     Dates: start: 20100317
  2. HUMIRA [Suspect]
     Active Substance: ADALIMUMAB
     Indication: PSORIATIC ARTHROPATHY
     Route: 058
     Dates: end: 20181015

REACTIONS (9)
  - Prostatic specific antigen increased [Unknown]
  - Procedural pain [Unknown]
  - Arthralgia [Unknown]
  - Cystoscopy abnormal [Unknown]
  - Post procedural haemorrhage [Recovered/Resolved]
  - Post procedural discomfort [Not Recovered/Not Resolved]
  - Myalgia [Unknown]
  - Testicular pain [Not Recovered/Not Resolved]
  - Prostatomegaly [Not Recovered/Not Resolved]

NARRATIVE: CASE EVENT DATE: 201811
